FAERS Safety Report 12346743 (Version 2)
Quarter: 2016Q3

REPORT INFORMATION
  Report Type: Report from Study
  Country: GB (occurrence: GB)
  Receive Date: 20160509
  Receipt Date: 20160908
  Transmission Date: 20161109
  Serious: Yes (Other)
  Sender: FDA-Public Use
  Company Number: GB-ABBVIE-16K-167-1618387-00

PATIENT
  Age: 75 Year
  Sex: Female
  Weight: 99.2 kg

DRUGS (3)
  1. BUSCOPAN [Concomitant]
     Active Substance: BUTYLSCOPOLAMINE BROMIDE
     Indication: PRODUCT USED FOR UNKNOWN INDICATION
     Dates: start: 20000101
  2. PIZOTIFEN [Concomitant]
     Active Substance: PIZOTYLINE
     Indication: PRODUCT USED FOR UNKNOWN INDICATION
     Dates: start: 20121108
  3. HUMIRA [Suspect]
     Active Substance: ADALIMUMAB
     Indication: PSORIASIS
     Route: 058
     Dates: start: 20131204, end: 20150715

REACTIONS (5)
  - Electrocardiogram abnormal [Recovered/Resolved]
  - Myocardial infarction [Recovered/Resolved]
  - Heart valve incompetence [Recovered/Resolved]
  - Uterine haemorrhage [Recovered/Resolved]
  - Dilatation atrial [Recovered/Resolved]

NARRATIVE: CASE EVENT DATE: 2015
